FAERS Safety Report 20582513 (Version 1)
Quarter: 2022Q1

REPORT INFORMATION
  Report Type: Spontaneous
  Country: TR (occurrence: TR)
  Receive Date: 20220311
  Receipt Date: 20220311
  Transmission Date: 20220423
  Serious: Yes (Hospitalization, Other)
  Sender: FDA-Public Use
  Company Number: TR-ABBVIE-22K-161-4307398-00

PATIENT
  Age: 29 Year
  Sex: Female
  Weight: 80 kg

DRUGS (6)
  1. VALPROIC ACID [Suspect]
     Active Substance: VALPROIC ACID
     Indication: Suicidal behaviour
     Dosage: 40 PILLS OF 500 MG
     Route: 065
  2. VALPROIC ACID [Suspect]
     Active Substance: VALPROIC ACID
     Indication: Generalised tonic-clonic seizure
  3. PROPRANOLOL HYDROCHLORIDE [Suspect]
     Active Substance: PROPRANOLOL HYDROCHLORIDE
     Indication: Suicidal behaviour
     Dosage: 10000 MG, 250 PILLS OF 40 MG
     Route: 065
  4. BIPERIDEN [Suspect]
     Active Substance: BIPERIDEN
     Indication: Suicidal behaviour
     Dosage: 60 PILLS OF 2 MG
     Route: 065
  5. RISPERIDONE [Suspect]
     Active Substance: RISPERIDONE
     Indication: Suicidal behaviour
     Dosage: 130 PILLS OF 4 MG
     Route: 065
  6. RISPERIDONE [Suspect]
     Active Substance: RISPERIDONE
     Indication: Generalised tonic-clonic seizure

REACTIONS (6)
  - Toxicity to various agents [Unknown]
  - Circulatory collapse [Unknown]
  - Haemodynamic instability [Recovered/Resolved]
  - Metabolic acidosis [Recovered/Resolved]
  - Bradycardia [Unknown]
  - Hypotension [Unknown]
